FAERS Safety Report 23531024 (Version 1)
Quarter: 2024Q1

REPORT INFORMATION
  Report Type: Spontaneous
  Country: FR (occurrence: FR)
  Receive Date: 20240216
  Receipt Date: 20240216
  Transmission Date: 20240410
  Serious: Yes (Other)
  Sender: FDA-Public Use
  Company Number: FR-SUN PHARMACEUTICAL INDUSTRIES LTD-2024RR-431471

PATIENT
  Age: 49 Year
  Sex: Female

DRUGS (2)
  1. TEMOZOLOMIDE [Suspect]
     Active Substance: TEMOZOLOMIDE
     Indication: Pancreatic neuroendocrine tumour
     Dosage: 150 MG/M2 IN CYCLE 1 AND 200 MG/M2 IN SUBSEQUENT CYCLES
     Route: 048
     Dates: start: 20230405
  2. CAPECITABINE [Suspect]
     Active Substance: CAPECITABINE
     Indication: Pancreatic neuroendocrine tumour
     Dosage: 250MG/DAY IN CYCLE 1 AND THEN AT 340MG/DAY IN SUBSEQUENT CYCLES, 5 CONSECUTIVE DAYS.
     Route: 048

REACTIONS (3)
  - Toxic skin eruption [Recovered/Resolved]
  - Hallucination, visual [Recovered/Resolved]
  - Eating disorder [Recovered/Resolved]

NARRATIVE: CASE EVENT DATE: 20230601
